FAERS Safety Report 4494455-4 (Version None)
Quarter: 2004Q4

REPORT INFORMATION
  Report Type: 
  Country: None (occurrence: None)
  Receive Date: 20041102
  Receipt Date: 20041022
  Transmission Date: 20050328
  Serious: Yes (Hospitalization)
  Sender: FDA-Public Use
  Company Number: US_0409106194

PATIENT
  Age: 51 Week
  Sex: Female

DRUGS (8)
  1. CEFACLOR [Suspect]
     Indication: BRONCHITIS
     Dosage: 200 MG
  2. FLUMARIN (FLOMOXEF SODIUM) [Concomitant]
  3. PROCATEROL HCL [Concomitant]
  4. MUCOSOLVAN (AMBROXOL HYDROCHLORIDE) [Concomitant]
  5. CARBAMAZEPINE [Concomitant]
  6. ALIMEZINE (ALIMEMAZINE) [Concomitant]
  7. MEDICON (DEXTROMETHORPHAN HYDROBROMIDE) [Concomitant]
  8. HOKUNALIN (TULOBUTEROL HYDROCHLORIDE) [Concomitant]

REACTIONS (2)
  - NEUTROPENIA [None]
  - PYREXIA [None]
